FAERS Safety Report 8763838 (Version 5)
Quarter: 2012Q4

REPORT INFORMATION
  Report Type: 
  Country: US (occurrence: US)
  Receive Date: 20120831
  Receipt Date: 20121219
  Transmission Date: 20130627
  Serious: Yes (Hospitalization, Other)
  Sender: FDA-Public Use
  Company Number: US-ASTRAZENECA-2012SE61001

PATIENT
  Age: 56 Year
  Sex: Male
  Weight: 99.8 kg

DRUGS (20)
  1. NEXIUM [Suspect]
     Indication: GASTROOESOPHAGEAL REFLUX DISEASE
     Route: 048
     Dates: start: 201205, end: 201209
  2. NEXIUM [Suspect]
     Indication: GASTROOESOPHAGEAL REFLUX DISEASE
     Route: 048
     Dates: start: 201209
  3. SEROQUEL [Suspect]
     Indication: ALCOHOL USE
     Route: 048
     Dates: start: 201204
  4. SEROQUEL [Suspect]
     Indication: ALCOHOL USE
     Route: 048
     Dates: start: 201204
  5. PRILOSEC [Suspect]
     Indication: GASTROOESOPHAGEAL REFLUX DISEASE
     Route: 048
     Dates: start: 2010, end: 201205
  6. ATENOLOL [Suspect]
     Indication: HYPERTENSION
     Route: 048
     Dates: start: 201210
  7. LISINOPRIL [Suspect]
     Indication: HYPERTENSION
     Route: 048
     Dates: start: 201204, end: 201209
  8. LISINOPRIL [Suspect]
     Indication: HYPERTENSION
     Route: 048
     Dates: start: 201209
  9. CRESTOR [Suspect]
     Route: 048
  10. THIAMINE [Concomitant]
     Indication: SUPPLEMENTATION THERAPY
     Dates: start: 201210
  11. OXYCONTIN [Concomitant]
     Indication: PAIN
     Dosage: 5 MG/ 325 MG, AS NEEDED
     Dates: start: 201210
  12. ALBUTEROL [Concomitant]
     Indication: RESPIRATORY DISORDER
     Dosage: 3 MG, 2 PUFFS QID
     Route: 045
     Dates: start: 201204
  13. AMLODIPINE [Concomitant]
     Indication: HYPERTENSION
     Route: 050
     Dates: start: 201210
  14. ATORVASTATIN [Concomitant]
     Route: 050
     Dates: start: 201210
  15. BENEPROTEIN/PROMOD [Concomitant]
     Indication: SUPPLEMENTATION THERAPY
     Route: 050
     Dates: start: 201210
  16. CLOPIDOGREL [Concomitant]
     Indication: ANTIPLATELET THERAPY
     Route: 050
     Dates: start: 201210
  17. FOLIC ACID [Concomitant]
     Indication: ALCOHOL ABUSE
     Route: 048
     Dates: start: 201204, end: 201209
  18. FOLIC ACID [Concomitant]
     Indication: ALCOHOL ABUSE
     Route: 050
     Dates: start: 201209
  19. METOCLOPRAMIDE [Concomitant]
     Indication: GASTROINTESTINAL TUBE INSERTION
     Route: 050
     Dates: start: 201210, end: 20121015
  20. METOCLOPRAMIDE [Concomitant]
     Indication: GASTROINTESTINAL TUBE INSERTION
     Route: 050
     Dates: start: 20121015

REACTIONS (13)
  - Cerebrovascular accident [Recovered/Resolved]
  - Coronary artery occlusion [Recovered/Resolved]
  - Pneumonia [Unknown]
  - Blood pressure abnormal [Unknown]
  - Dysphagia [Unknown]
  - Dementia [Unknown]
  - Alcohol withdrawal syndrome [Unknown]
  - Malaise [Unknown]
  - Dehydration [Unknown]
  - Hallucination [Unknown]
  - Drug ineffective [Unknown]
  - Off label use [Unknown]
  - Intentional drug misuse [Unknown]
